FAERS Safety Report 14846456 (Version 1)
Quarter: 2018Q2

REPORT INFORMATION
  Report Type: Report from Study
  Country: US (occurrence: US)
  Receive Date: 20180504
  Receipt Date: 20180504
  Transmission Date: 20180711
  Serious: Yes (Hospitalization)
  Sender: FDA-Public Use
  Company Number: US-TEVA-2018-US-888865

PATIENT
  Sex: Female

DRUGS (6)
  1. ESTRADIOL. [Concomitant]
     Active Substance: ESTRADIOL
  2. ESCITALOPRAM [Concomitant]
     Active Substance: ESCITALOPRAM OXALATE
  3. DIAZEPAM. [Concomitant]
     Active Substance: DIAZEPAM
  4. MYRBETRIQ [Concomitant]
     Active Substance: MIRABEGRON
  5. COPAXONE [Suspect]
     Active Substance: GLATIRAMER ACETATE
     Indication: MULTIPLE SCLEROSIS
     Route: 058
     Dates: start: 20171222
  6. OXYCODONE AND ACETAMINOPHEN [Concomitant]
     Active Substance: ACETAMINOPHEN\OXYCODONE HYDROCHLORIDE

REACTIONS (7)
  - Hypotension [Unknown]
  - Rash [Unknown]
  - Vomiting [Unknown]
  - Loss of consciousness [Unknown]
  - Liver function test increased [Unknown]
  - Pain [Unknown]
  - Confusional state [Unknown]
